FAERS Safety Report 6593928-8 (Version None)
Quarter: 2010Q1

REPORT INFORMATION
  Report Type: 
  Country: None (occurrence: None)
  Receive Date: 20100218
  Receipt Date: 20100218
  Transmission Date: 20100710
  Serious: Yes (Hospitalization)
  Sender: FDA-Public Use
  Company Number: None

PATIENT
  Age: 58 Year
  Sex: Male

DRUGS (1)
  1. MORPHINE [Suspect]
     Dosage: 80 MG EVERY DAY PO
     Route: 048

REACTIONS (6)
  - INCORRECT DOSE ADMINISTERED [None]
  - LETHARGY [None]
  - PALLOR [None]
  - RESPIRATORY DEPRESSION [None]
  - SEDATION [None]
  - VOMITING [None]
